FAERS Safety Report 17687646 (Version 1)
Quarter: 2020Q2

REPORT INFORMATION
  Report Type: Report from Study
  Country: US (occurrence: US)
  Receive Date: 20200421
  Receipt Date: 20200421
  Transmission Date: 20200714
  Serious: Yes (Hospitalization, Other)
  Sender: FDA-Public Use
  Company Number: US-BAUSCH-BL-2020-011760

PATIENT
  Age: 77 Year
  Sex: Female
  Weight: 48.7 kg

DRUGS (14)
  1. ALDACTONE [Concomitant]
     Active Substance: SPIRONOLACTONE
     Indication: PRODUCT USED FOR UNKNOWN INDICATION
     Dosage: 50 MG (0.5 TABLET) BY MOUTH TWICE DAILY
     Route: 048
  2. VITAMIN K [Concomitant]
     Active Substance: PHYTONADIONE
     Indication: PRODUCT USED FOR UNKNOWN INDICATION
     Dosage: 100 MICROGRAMS BY MOUTH DAILY
     Route: 048
  3. PREVALITE [Concomitant]
     Active Substance: CHOLESTYRAMINE
     Indication: PRODUCT USED FOR UNKNOWN INDICATION
     Dosage: ONE PACKET (4 G TOTAL) BY MOUTH
     Route: 048
  4. CALCIUM [Concomitant]
     Active Substance: CALCIUM
     Indication: PRODUCT USED FOR UNKNOWN INDICATION
     Dosage: 600-200 MG-UNIT TABLET, BY MOUTH
     Route: 048
  5. ZOFRAN ODT [Concomitant]
     Active Substance: ONDANSETRON HYDROCHLORIDE
     Indication: PRODUCT USED FOR UNKNOWN INDICATION
     Dosage: DISINTEGRATING TABLET 4 MG BY MOUTH TWICE DAILY
     Route: 048
  6. ZOLOFT [Concomitant]
     Active Substance: SERTRALINE HYDROCHLORIDE
     Indication: PRODUCT USED FOR UNKNOWN INDICATION
     Dosage: 25 MG BY MOUTH DAILY
     Route: 048
  7. ZINC SULFATE. [Concomitant]
     Active Substance: ZINC SULFATE
     Indication: PRODUCT USED FOR UNKNOWN INDICATION
     Dosage: (50 ZN) 220 MG BY MOUTH TWICE DAILY
     Route: 048
  8. CHRONULAC [Suspect]
     Active Substance: LACTULOSE
     Indication: INFREQUENT BOWEL MOVEMENTS
     Dosage: 30 ML (20 G TOTAL), 10 GM/15 ML
     Route: 048
     Dates: start: 202004
  9. VITAMIN D3 [Concomitant]
     Active Substance: CHOLECALCIFEROL
     Indication: PRODUCT USED FOR UNKNOWN INDICATION
     Dosage: 1000 UNIT TABLET, BY MOUTH
     Route: 048
  10. XIFAXAN [Suspect]
     Active Substance: RIFAXIMIN
     Indication: PRODUCT USED FOR UNKNOWN INDICATION
     Route: 048
  11. LASIX [Concomitant]
     Active Substance: FUROSEMIDE
     Indication: PRODUCT USED FOR UNKNOWN INDICATION
     Dosage: 20 MG BY MOUTH DAILY
     Route: 048
  12. NOVOLOG [Concomitant]
     Active Substance: INSULIN ASPART
     Indication: PRODUCT USED FOR UNKNOWN INDICATION
     Dosage: STRENGTH: 100 UNIT/ML FLEX PEN (INJECTION 1- 6 UNITS INTO THE SKIN 3 TIMES DAILY WITH MEAL)
  13. PRILOSEC [Concomitant]
     Active Substance: OMEPRAZOLE MAGNESIUM
     Indication: PRODUCT USED FOR UNKNOWN INDICATION
     Dosage: 40 MG BY MOUTH DAILY
     Route: 048
  14. PRAVACHOL [Concomitant]
     Active Substance: PRAVASTATIN SODIUM
     Indication: PRODUCT USED FOR UNKNOWN INDICATION
     Dosage: 10 MG BY MOUTH EVERY OTHER DAY
     Route: 048

REACTIONS (11)
  - Gastrooesophageal reflux disease [Unknown]
  - Insulin-requiring type 2 diabetes mellitus [Unknown]
  - Pancreaticoduodenectomy [Unknown]
  - Thrombocytopenia [Unknown]
  - Infrequent bowel movements [Not Recovered/Not Resolved]
  - Portal hypertension [Unknown]
  - Gastric varices [Unknown]
  - Inability to afford medication [Unknown]
  - Hepatic cirrhosis [Unknown]
  - Portal hypertensive gastropathy [Unknown]
  - Non-alcoholic steatohepatitis [Unknown]
